FAERS Safety Report 15075243 (Version 1)
Quarter: 2018Q2

REPORT INFORMATION
  Report Type: Spontaneous
  Country: US (occurrence: US)
  Receive Date: 20180627
  Receipt Date: 20180627
  Transmission Date: 20180711
  Serious: Yes (Other)
  Sender: FDA-Public Use
  Company Number: US-SAOL THERAPEUTICS-2018SAO00178

PATIENT
  Sex: Female

DRUGS (5)
  1. BACLOFEN. [Suspect]
     Active Substance: BACLOFEN
     Indication: PAIN
  2. CLONIDINE. [Suspect]
     Active Substance: CLONIDINE
     Dosage: 56.11 ?G, \DAY
     Route: 037
  3. BUPIVACAINE. [Suspect]
     Active Substance: BUPIVACAINE
     Dosage: 9.002 ?G, \DAY
     Route: 037
  4. MORPHINE [Suspect]
     Active Substance: MORPHINE
     Dosage: 7.502 ?G, \DAY
     Route: 037
  5. BACLOFEN. [Suspect]
     Active Substance: BACLOFEN
     Indication: PAIN
     Dosage: 30.01 ?G, \DAY
     Route: 037

REACTIONS (1)
  - Drug withdrawal syndrome [Unknown]

NARRATIVE: CASE EVENT DATE: 201802
